FAERS Safety Report 25900896 (Version 1)
Quarter: 2025Q4

REPORT INFORMATION
  Report Type: Spontaneous
  Country: EU (occurrence: EU)
  Receive Date: 20251009
  Receipt Date: 20251009
  Transmission Date: 20260117
  Serious: Yes (Hospitalization, Other)
  Sender: AUROBINDO
  Company Number: EU-BRISTOL-MYERS SQUIBB COMPANY-2025-122097

PATIENT
  Age: 74 Year
  Sex: Male

DRUGS (21)
  1. CARBOPLATIN [Suspect]
     Active Substance: CARBOPLATIN
     Indication: Non-small cell lung cancer
     Dosage: 550 MILLIGRAM (1 TOTAL)
     Route: 042
     Dates: start: 20230920, end: 20231101
  2. OPDIVO [Suspect]
     Active Substance: NIVOLUMAB
     Indication: Non-small cell lung cancer
     Dosage: 360 MILLIGRAM, 3 WEEKS
     Route: 042
     Dates: start: 20230920, end: 20240417
  3. YERVOY [Suspect]
     Active Substance: IPILIMUMAB
     Indication: Non-small cell lung cancer
     Dosage: 80 MILLIGRAM, 6 WEEK
     Route: 042
     Dates: start: 20230920, end: 20240417
  4. CARBIMAZOLE [Concomitant]
     Active Substance: CARBIMAZOLE
     Indication: Product used for unknown indication
     Dosage: UNK
     Route: 065
     Dates: start: 20230914, end: 20231208
  5. PREDNISONE [Concomitant]
     Active Substance: PREDNISONE
     Indication: Product used for unknown indication
     Dosage: UNK
     Route: 065
     Dates: start: 20240221, end: 20240226
  6. PREDNISONE [Concomitant]
     Active Substance: PREDNISONE
     Dosage: UNK
     Route: 065
     Dates: start: 20240227, end: 20240304
  7. PREDNISONE [Concomitant]
     Active Substance: PREDNISONE
     Dosage: UNK
     Route: 065
     Dates: start: 20240305, end: 20240719
  8. PREDNISONE [Concomitant]
     Active Substance: PREDNISONE
     Dosage: UNK
     Route: 065
     Dates: start: 20240720, end: 20240803
  9. PREDNISONE [Concomitant]
     Active Substance: PREDNISONE
     Dosage: UNK
     Route: 065
     Dates: start: 20240804, end: 20240818
  10. PREDNISONE [Concomitant]
     Active Substance: PREDNISONE
     Dosage: UNK
     Route: 065
     Dates: start: 20240819, end: 20240905
  11. PREDNISOLONE [Concomitant]
     Active Substance: PREDNISOLONE
     Indication: Product used for unknown indication
     Dosage: UNK
     Route: 065
     Dates: start: 20250902, end: 20250902
  12. PREDNISOLONE [Concomitant]
     Active Substance: PREDNISOLONE
     Dosage: UNK
     Route: 065
     Dates: start: 20240906, end: 20240912
  13. PREDNISOLONE [Concomitant]
     Active Substance: PREDNISOLONE
     Dosage: UNK
     Route: 065
     Dates: start: 20240913, end: 20240926
  14. PREDNISOLONE [Concomitant]
     Active Substance: PREDNISOLONE
     Dosage: UNK
     Route: 065
     Dates: start: 20240927, end: 20241004
  15. Testosteron depot eifelfango [Concomitant]
     Indication: Product used for unknown indication
     Dosage: UNK
     Route: 065
     Dates: start: 20231030
  16. CHOLECALCIFEROL [Concomitant]
     Active Substance: CHOLECALCIFEROL
     Indication: Prophylaxis
     Dosage: UNK
     Route: 065
     Dates: start: 20231030
  17. BUDESONIDE [Concomitant]
     Active Substance: BUDESONIDE
     Indication: Product used for unknown indication
     Dosage: UNK
     Route: 065
     Dates: start: 20231011, end: 20241212
  18. INNOHEP [Concomitant]
     Active Substance: TINZAPARIN SODIUM
     Indication: Product used for unknown indication
     Dosage: UNK
     Route: 065
     Dates: start: 20230914, end: 20240124
  19. ELIQUIS [Concomitant]
     Active Substance: APIXABAN
     Indication: Product used for unknown indication
     Dosage: UNK
     Route: 065
     Dates: start: 20240125
  20. POLYETHYLENE GLYCOLS [Concomitant]
     Active Substance: POLYETHYLENE GLYCOLS
     Indication: Prophylaxis
     Dosage: UNK
     Route: 065
     Dates: start: 20230927
  21. LORAZEPAM [Concomitant]
     Active Substance: LORAZEPAM
     Indication: Product used for unknown indication
     Dosage: UNK
     Route: 065
     Dates: start: 20240912

REACTIONS (6)
  - Syncope [Unknown]
  - Epilepsy [Unknown]
  - Encephalitis autoimmune [Recovered/Resolved]
  - Hypokalaemia [Unknown]
  - Bradycardia [Unknown]
  - Hypotension [Unknown]

NARRATIVE: CASE EVENT DATE: 20250902
